FAERS Safety Report 5405098-X (Version None)
Quarter: 2007Q3

REPORT INFORMATION
  Report Type: 
  Country: None (occurrence: None)
  Receive Date: 20070803
  Receipt Date: 20070719
  Transmission Date: 20080115
  Serious: Yes (Other)
  Sender: FDA-Public Use
  Company Number: FR-AVENTIS-200712259FR

PATIENT
  Age: 66 Year
  Sex: Male
  Weight: 100 kg

DRUGS (4)
  1. FLAGYL [Suspect]
     Route: 042
     Dates: start: 20070619, end: 20070711
  2. CEFTRIAXONE [Suspect]
     Route: 042
     Dates: start: 20070601
  3. FUNGIZONE [Concomitant]
     Indication: CANDIDIASIS
     Route: 048
  4. BICARBONATE [Concomitant]
     Indication: CANDIDIASIS

REACTIONS (7)
  - CONFUSIONAL STATE [None]
  - DEPRESSION [None]
  - DIARRHOEA [None]
  - DYSGEUSIA [None]
  - GLOSSITIS [None]
  - NAUSEA [None]
  - ORAL CANDIDIASIS [None]
